FAERS Safety Report 9172072 (Version 2)
Quarter: 2013Q2

REPORT INFORMATION
  Report Type: Report from Study
  Country: BR (occurrence: BR)
  Receive Date: 20130319
  Receipt Date: 20130523
  Transmission Date: 20140414
  Serious: Yes (Other)
  Sender: FDA-Public Use
  Company Number: PHHY2013BR026671

PATIENT
  Sex: Female
  Weight: 63 kg

DRUGS (5)
  1. ACLASTA [Suspect]
     Indication: OSTEOPOROSIS
     Dosage: 5 MG/100 ML, ONCE A YEAR
     Route: 042
     Dates: start: 201212
  2. DORMONID [Concomitant]
     Indication: SLEEP DISORDER
     Dosage: 0.5 DF, AT NIGHT
     Route: 048
  3. JURNISTA [Concomitant]
     Dosage: 1 DF, DAILY
     Route: 048
     Dates: start: 201208
  4. LISADOR [Concomitant]
     Indication: PAIN
     Dosage: 40 DRP, UNK
     Route: 048
     Dates: start: 201208
  5. DIPYRONE [Concomitant]
     Indication: PAIN
     Dosage: 40 DROPS OR 20 ML (SYRUP)
     Route: 048
     Dates: start: 201208

REACTIONS (3)
  - Cerebrovascular accident [Recovered/Resolved]
  - Muscular weakness [Recovering/Resolving]
  - Musculoskeletal disorder [Recovering/Resolving]
